FAERS Safety Report 5777322-5 (Version None)
Quarter: 2008Q2

REPORT INFORMATION
  Report Type: 
  Country: None (occurrence: None)
  Receive Date: 20080618
  Receipt Date: 20080609
  Transmission Date: 20081010
  Serious: Yes (Hospitalization, Other)
  Sender: FDA-Public Use
  Company Number: PHFR2008GB00904

PATIENT
  Sex: Male

DRUGS (10)
  1. CLOZARIL [Suspect]
     Indication: SCHIZOPHRENIA
     Dosage: UNK
     Route: 048
     Dates: start: 19930309, end: 20080101
  2. OLANZAPINE [Concomitant]
     Route: 065
  3. VENLAFAXINE HCL [Concomitant]
     Dosage: 225 MG NOCTE
  4. CALCICHEW D3 [Concomitant]
     Dosage: 1 TABLET
  5. PEPTAC [Concomitant]
     Dosage: 20 MLS
  6. LANSOPRAZOLE [Suspect]
     Dosage: 30 MG
  7. TETRABENAZINE [Concomitant]
     Dosage: 50 MG
  8. DIAZEPAM [Concomitant]
     Dosage: 5 MG NOCTE
  9. LORAZEPAM [Concomitant]
     Dosage: 0.5 TO 1 MG UP TO 2 MG IN 24 HRS
  10. ACETAMINOPHEN [Concomitant]
     Dosage: 1 G UP TO QDS

REACTIONS (17)
  - BLADDER DISTENSION [None]
  - COMMUNICATION DISORDER [None]
  - CONFUSIONAL STATE [None]
  - CONSTIPATION [None]
  - COORDINATION ABNORMAL [None]
  - DEEP VEIN THROMBOSIS [None]
  - DEHYDRATION [None]
  - EATING DISORDER [None]
  - LEUKOPENIA [None]
  - LOWER RESPIRATORY TRACT INFECTION [None]
  - MALAISE [None]
  - MENTAL IMPAIRMENT [None]
  - MOBILITY DECREASED [None]
  - NEUROLEPTIC MALIGNANT SYNDROME [None]
  - NEUTROPHIL COUNT DECREASED [None]
  - SCHIZOPHRENIA, CATATONIC TYPE [None]
  - WHITE BLOOD CELL COUNT DECREASED [None]
